FAERS Safety Report 5350392-4 (Version None)
Quarter: 2007Q2

REPORT INFORMATION
  Report Type: 
  Country: None (occurrence: None)
  Receive Date: 20070606
  Receipt Date: 20070606
  Transmission Date: 20071010
  Serious: No
  Sender: FDA-Public Use
  Company Number: None

PATIENT
  Sex: Male
  Weight: 19.8 kg

DRUGS (1)
  1. INCRELEX [Suspect]
     Indication: GROWTH RETARDATION
     Dosage: 2.4MG  BID SQ
     Route: 058
     Dates: start: 20070207

REACTIONS (4)
  - COUGH [None]
  - INJECTION SITE REACTION [None]
  - INJECTION SITE URTICARIA [None]
  - SWELLING FACE [None]
